FAERS Safety Report 9423146 (Version 1)
Quarter: 2013Q3

REPORT INFORMATION
  Report Type: Spontaneous
  Country: PT (occurrence: PT)
  Receive Date: 20130726
  Receipt Date: 20130726
  Transmission Date: 20140515
  Serious: Yes (Other)
  Sender: FDA-Public Use
  Company Number: PT-BRISTOL-MYERS SQUIBB COMPANY-19119619

PATIENT
  Age: 52 Year
  Sex: 0

DRUGS (1)
  1. ENTECAVIR [Suspect]

REACTIONS (2)
  - Hepatocellular carcinoma [Unknown]
  - Oesophageal varices haemorrhage [Unknown]
